FAERS Safety Report 6469937-6 (Version None)
Quarter: 2009Q4

REPORT INFORMATION
  Report Type: 
  Country: None (occurrence: None)
  Receive Date: 20091203
  Receipt Date: 20090506
  Transmission Date: 20100525
  Serious: Yes (Disabling)
  Sender: FDA-Public Use
  Company Number: US-ELI_LILLY_AND_COMPANY-US200710007284

PATIENT
  Sex: Female
  Weight: 113.83 kg

DRUGS (11)
  1. BYETTA [Suspect]
     Indication: OBESITY
     Dosage: 5 UG, 2/D
     Route: 058
     Dates: start: 20070914, end: 20071101
  2. BYETTA [Suspect]
     Dosage: 10 UG, 2/D
     Route: 058
     Dates: start: 20071101, end: 20071201
  3. BYETTA [Suspect]
     Dosage: 5 UG, 2/D
     Route: 058
     Dates: start: 20071201
  4. BYETTA [Suspect]
     Dosage: 5 UG, 2/D
     Route: 058
     Dates: end: 20090101
  5. METFORMIN HCL [Concomitant]
     Indication: TYPE 2 DIABETES MELLITUS
     Dosage: 850 MG, 2/D
     Route: 048
  6. DRUG USED IN DIABETES [Concomitant]
     Indication: TYPE 2 DIABETES MELLITUS
     Dosage: 100 MG, DAILY (1/D)
     Route: 065
  7. GLYBURIDE [Concomitant]
     Indication: TYPE 2 DIABETES MELLITUS
     Dosage: 1.25 MG, DAILY (1/D)
     Route: 048
  8. SIMAVASTATIN [Concomitant]
     Dates: end: 20080301
  9. PRAVASTATIN [Concomitant]
     Indication: BLOOD CHOLESTEROL INCREASED
     Dosage: UNK, UNK
     Dates: start: 20080301
  10. METOPROLOL [Concomitant]
     Indication: BLOOD PRESSURE INCREASED
     Dosage: 50 MG, 2/D
     Route: 048
  11. FUROSEMIDE [Concomitant]
     Indication: FLUID RETENTION
     Dosage: 50 MG, DAILY (1/D)
     Route: 048

REACTIONS (9)
  - ARTHRALGIA [None]
  - DIZZINESS [None]
  - GAIT DISTURBANCE [None]
  - MONARTHRITIS [None]
  - MUSCLE ATROPHY [None]
  - MYALGIA [None]
  - NAUSEA [None]
  - PAIN IN EXTREMITY [None]
  - WEIGHT DECREASED [None]
